FAERS Safety Report 8817687 (Version 2)
Quarter: 2012Q4

REPORT INFORMATION
  Report Type: 
  Country: IT (occurrence: IT)
  Receive Date: 20121001
  Receipt Date: 20121009
  Transmission Date: 20130627
  Serious: Yes (Hospitalization)
  Sender: FDA-Public Use
  Company Number: PHHY2012IT084274

PATIENT
  Age: 55 Year
  Sex: Female

DRUGS (6)
  1. TEGRETOL [Suspect]
     Indication: EPILEPSY
     Dosage: 1000 mg, daily
     Route: 048
     Dates: start: 20040809
  2. RAMIPRIL [Concomitant]
     Dosage: 5 mg, UNK
     Route: 048
  3. SIMVASTATIN [Concomitant]
     Dosage: 20 mg, UNK
     Route: 048
  4. ACETYLSALICYLIC ACID [Concomitant]
     Dosage: 160 mg, UNK
     Route: 048
  5. RIVOTRIL [Concomitant]
     Dosage: 40 drp, UNK
     Route: 048
  6. KEPPRA [Concomitant]
     Dosage: 1000 mg, UNK
     Route: 048

REACTIONS (8)
  - Fall [Recovered/Resolved with Sequelae]
  - Foot fracture [Recovered/Resolved with Sequelae]
  - Hyponatraemia [Recovered/Resolved with Sequelae]
  - Gait disturbance [Recovered/Resolved with Sequelae]
  - Ecchymosis [Recovered/Resolved with Sequelae]
  - Contusion [Recovered/Resolved with Sequelae]
  - White blood cell count increased [Recovered/Resolved with Sequelae]
  - Syncope [Recovered/Resolved with Sequelae]
